FAERS Safety Report 10025352 (Version 1)
Quarter: 2014Q1

REPORT INFORMATION
  Report Type: Spontaneous
  Country: JP (occurrence: JP)
  Receive Date: 20140320
  Receipt Date: 20140320
  Transmission Date: 20141002
  Serious: Yes (Other)
  Sender: FDA-Public Use
  Company Number: JP-GLAXOSMITHKLINE-B0977192A

PATIENT
  Age: 21 Year
  Sex: Female

DRUGS (1)
  1. ZEFIX 100 [Suspect]
     Indication: ACUTE HEPATITIS B
     Route: 048

REACTIONS (1)
  - Haemolytic anaemia [Unknown]
